FAERS Safety Report 5424673-X (Version None)
Quarter: 2007Q3

REPORT INFORMATION
  Report Type: 
  Country: None (occurrence: None)
  Receive Date: 20070822
  Receipt Date: 20070822
  Transmission Date: 20080115
  Serious: Yes (Hospitalization)
  Sender: FDA-Public Use
  Company Number: None

PATIENT
  Age: 52 Year
  Sex: Female
  Weight: 66.2252 kg

DRUGS (1)
  1. RIBAPAK 1000MG/DAY - THREE RIVERS PHARM. [Suspect]
     Indication: HEPATITIS C
     Dosage: 600MG ONCE IN AM PO 400MG ONCE IN PM PO
     Route: 048

REACTIONS (1)
  - WHITE BLOOD CELL COUNT DECREASED [None]
